FAERS Safety Report 9196960 (Version 1)
Quarter: 2013Q1

REPORT INFORMATION
  Report Type: Spontaneous
  Country: US (occurrence: None)
  Receive Date: 20120709
  Receipt Date: 20120709
  Transmission Date: 20140127
  Serious: Yes (Other)
  Sender: FDA-Public Use
  Company Number: PHEH2012US002396

PATIENT
  Age: 50 Year
  Sex: Male

DRUGS (2)
  1. GLEEVEC [Suspect]
     Indication: LEUKAEMIA
     Dosage: UNK UKN , QD
  2. CHEMOTHERAPEUTICS NOS (NO INGREDIENTS/ SUBSTANCES) [Concomitant]

REACTIONS (1)
  - Pneumonia [None]
